FAERS Safety Report 21191806 (Version 1)
Quarter: 2022Q3

REPORT INFORMATION
  Report Type: Spontaneous
  Country: US (occurrence: None)
  Receive Date: 20220809
  Receipt Date: 20220809
  Transmission Date: 20221026
  Serious: Yes (unspecified)
  Sender: FDA-Public Use
  Company Number: None

PATIENT
  Age: 65 Year
  Sex: Female

DRUGS (14)
  1. MYCOPHENOLIC ACID [Suspect]
     Active Substance: MYCOPHENOLIC ACID
     Indication: Renal transplant
     Dosage: FREQUENCY : TWICE A DAY;?
     Route: 048
     Dates: start: 20200225
  2. NEORAL [Suspect]
     Active Substance: CYCLOSPORINE
     Indication: Renal transplant
     Dosage: FREQUENCY : TWICE A DAY;?
     Route: 048
     Dates: start: 20200702
  3. Hydralazine 50 mg tablets [Concomitant]
  4. ALLOPURINOL [Concomitant]
     Active Substance: ALLOPURINOL
  5. Atenolol 50 mg tablets [Concomitant]
  6. ATORVASTATIN CALCIUM [Concomitant]
     Active Substance: ATORVASTATIN CALCIUM
  7. ENALAPRIL [Concomitant]
     Active Substance: ENALAPRIL
  8. Ezetimbe 10 mg tablets [Concomitant]
  9. FUROSEMIDE [Concomitant]
     Active Substance: FUROSEMIDE
  10. Potassium cl 10 meq tablets [Concomitant]
  11. Prednisone 5 mg tablets [Concomitant]
  12. Vesicare 10 mg tablets [Concomitant]
  13. Amlodipine 2.5 mg tablets [Concomitant]
  14. Losartan 100 mg tablets [Concomitant]

REACTIONS (1)
  - Ear neoplasm malignant [None]

NARRATIVE: CASE EVENT DATE: 20220723
